FAERS Safety Report 6894680-9 (Version None)
Quarter: 2010Q3

REPORT INFORMATION
  Report Type: 
  Country: None (occurrence: None)
  Receive Date: 20100802
  Receipt Date: 20100728
  Transmission Date: 20110219
  Serious: Yes (Death)
  Sender: FDA-Public Use
  Company Number: JP-EISAI INC.-E2090-01255-SPO-JP

PATIENT
  Age: 65 Year
  Sex: Male

DRUGS (4)
  1. TRERIEF [Suspect]
     Indication: PARKINSON'S DISEASE
     Route: 048
     Dates: start: 20100713
  2. COMTAN [Concomitant]
  3. PRAMIPEXOLE DIHYDROCHLORIDE [Concomitant]
  4. L-DOPA [Concomitant]

REACTIONS (1)
  - DYSHIDROSIS [None]
